FAERS Safety Report 10531878 (Version 1)
Quarter: 2014Q4

REPORT INFORMATION
  Report Type: Spontaneous
  Country: BR (occurrence: BR)
  Receive Date: 20141021
  Receipt Date: 20141021
  Transmission Date: 20150529
  Serious: Yes (Other)
  Sender: FDA-Public Use
  Company Number: BR-MERCK-1410BRA009928

PATIENT
  Sex: Female
  Weight: 60 kg

DRUGS (10)
  1. RITMONORM [Concomitant]
     Active Substance: PROPAFENONE HYDROCHLORIDE
     Indication: ARRHYTHMIA
     Dosage: 0.5 DF, BID
     Route: 048
  2. LINAGLIPTIN (TRAYENTA) [Concomitant]
     Indication: DIABETES MELLITUS
     Dosage: UNK, UNKNOWN
  3. VITAMIN B COMPLEX [Concomitant]
     Active Substance: CYANOCOBALAMIN\DEXPANTHENOL\NIACINAMIDE\PYRIDOXINE HYDROCHLORIDE\RIBOFLAVIN 5^-PHOSPHATE SODIUM\THIAMINE HYDROCHLORIDE\VITAMIN B COMPLEX
     Indication: BACK PAIN
     Dosage: UNK, PRN
     Route: 048
  4. AZUKON M [Concomitant]
     Indication: DIABETES MELLITUS
     Dosage: UNK, UNKNOWN
  5. SINGULAIR [Suspect]
     Active Substance: MONTELUKAST SODIUM
     Indication: ASTHMA
     Dosage: UNK, UNKNOWN
     Route: 048
     Dates: start: 1994, end: 201408
  6. BENICAR [Concomitant]
     Active Substance: OLMESARTAN MEDOXOMIL
     Indication: HYPERTENSION
     Dosage: 40 MG, QAM
     Route: 048
  7. VERAPAMIL HYDROCHLORIDE. [Concomitant]
     Active Substance: VERAPAMIL HYDROCHLORIDE
     Indication: ARRHYTHMIA
     Dosage: 80 MG, BID
     Route: 048
  8. VITAMIN B COMPLEX [Concomitant]
     Active Substance: CYANOCOBALAMIN\DEXPANTHENOL\NIACINAMIDE\PYRIDOXINE HYDROCHLORIDE\RIBOFLAVIN 5^-PHOSPHATE SODIUM\THIAMINE HYDROCHLORIDE\VITAMIN B COMPLEX
     Indication: PAIN IN EXTREMITY
  9. FORASEQ [Concomitant]
     Active Substance: BUDESONIDE\FORMOTEROL FUMARATE
     Indication: ASTHMA
     Dosage: UNK, BID
     Route: 055
  10. METFORMIN [Concomitant]
     Active Substance: METFORMIN HYDROCHLORIDE
     Indication: DIABETES MELLITUS
     Dosage: 850 MG, QD
     Route: 048

REACTIONS (3)
  - Hiatus hernia [Not Recovered/Not Resolved]
  - Blood pressure increased [Recovered/Resolved]
  - Cholecystectomy [Unknown]

NARRATIVE: CASE EVENT DATE: 2000
